FAERS Safety Report 9105679 (Version 1)
Quarter: 2013Q1

REPORT INFORMATION
  Report Type: Spontaneous
  Country: US (occurrence: US)
  Receive Date: 20130221
  Receipt Date: 20130221
  Transmission Date: 20140127
  Serious: Yes (Death, Hospitalization)
  Sender: FDA-Public Use
  Company Number: US-GLAXOSMITHKLINE-A1012848A

PATIENT
  Age: 61 Year
  Sex: Female

DRUGS (5)
  1. ADVAIR [Suspect]
     Indication: CHRONIC OBSTRUCTIVE PULMONARY DISEASE
     Dosage: 1PUFF TWICE PER DAY
     Route: 055
  2. MORPHINE [Concomitant]
  3. STEROIDS [Concomitant]
  4. NEXIUM [Concomitant]
  5. ENERGY SUPPLEMENT [Concomitant]

REACTIONS (1)
  - Pancreatic carcinoma metastatic [Fatal]
